FAERS Safety Report 9540380 (Version 1)
Quarter: 2013Q3

REPORT INFORMATION
  Report Type: Spontaneous
  Country: PE (occurrence: PE)
  Receive Date: 20130920
  Receipt Date: 20130920
  Transmission Date: 20140515
  Serious: Yes (Other)
  Sender: FDA-Public Use
  Company Number: PE-GE HEALTHCARE MEDICAL DIAGNOSTICS-OMPQ-PR-1309S-1142

PATIENT
  Age: 11 Year
  Sex: Male
  Weight: 38 kg

DRUGS (2)
  1. OMNIPAQUE [Suspect]
     Indication: NEPHROPATHY
     Route: 042
     Dates: start: 20130824, end: 20130824
  2. OMNIPAQUE [Suspect]
     Indication: DIAGNOSTIC PROCEDURE

REACTIONS (4)
  - Skin discolouration [Recovered/Resolved]
  - Motor dysfunction [Recovered/Resolved]
  - Chest pain [Recovered/Resolved]
  - Dyspnoea [Recovered/Resolved]
